FAERS Safety Report 18158892 (Version 2)
Quarter: 2020Q3

REPORT INFORMATION
  Report Type: Report from Study
  Country: US (occurrence: US)
  Receive Date: 20200817
  Receipt Date: 20200914
  Transmission Date: 20201103
  Serious: Yes (Hospitalization)
  Sender: FDA-Public Use
  Company Number: US-VERTEX PHARMACEUTICALS-2020-016548

PATIENT
  Age: 32 Year
  Sex: Male
  Weight: 70 kg

DRUGS (14)
  1. PIPTAZO [Concomitant]
  2. WARFARIN [Concomitant]
     Active Substance: WARFARIN
  3. COLISTIMETHATE [Concomitant]
     Active Substance: COLISTIMETHATE SODIUM
  4. R TOBI [Concomitant]
  5. ALBUTEROL. [Concomitant]
     Active Substance: ALBUTEROL
     Dosage: 2.5 MILLIGRAM
  6. CEPHALEXINE [Concomitant]
     Active Substance: CEPHALEXIN
     Route: 048
  7. PANCRELIPASE. [Concomitant]
     Active Substance: PANCRELIPASE
     Route: 048
  8. XARELTO [Suspect]
     Active Substance: RIVAROXABAN
     Indication: DEEP VEIN THROMBOSIS
     Dosage: UNK
     Route: 065
     Dates: start: 2019, end: 20200731
  9. TRIKAFTA [Suspect]
     Active Substance: ELEXACAFTOR\IVACAFTOR\TEZACAFTOR
     Indication: CYSTIC FIBROSIS
     Dosage: (200 MG ELEXACAFTOR/100 MG TEZACAFTOR/150 MG IVACAFTOR) AM; (150 MG IVACAFTOR) PM
     Route: 048
     Dates: start: 201912
  10. AZITHROMYCIN ANHYDROUS. [Concomitant]
     Active Substance: AZITHROMYCIN ANHYDROUS
  11. ELIQUIS [Concomitant]
     Active Substance: APIXABAN
  12. CEFTZ [Concomitant]
  13. MERREM [Concomitant]
     Active Substance: MEROPENEM
  14. SEPTRA [Concomitant]
     Active Substance: SULFAMETHOXAZOLE\TRIMETHOPRIM

REACTIONS (1)
  - Haemoptysis [Recovered/Resolved]

NARRATIVE: CASE EVENT DATE: 20200731
